FAERS Safety Report 23657204 (Version 1)
Quarter: 2024Q1

REPORT INFORMATION
  Report Type: Spontaneous
  Country: US (occurrence: US)
  Receive Date: 20240321
  Receipt Date: 20240321
  Transmission Date: 20240409
  Serious: Yes (Hospitalization)
  Sender: FDA-Public Use
  Company Number: US-MYLANLABS-2024M1025267

PATIENT
  Age: 76 Year
  Sex: Male

DRUGS (2)
  1. METHADONE [Suspect]
     Active Substance: METHADONE HYDROCHLORIDE
     Indication: Drug use disorder
     Dosage: 80 MILLIGRAM, QD
     Route: 065
  2. METHADONE [Suspect]
     Active Substance: METHADONE HYDROCHLORIDE
     Dosage: 60 MILLIGRAM, QD
     Route: 065

REACTIONS (3)
  - Hypoglycaemia [Unknown]
  - Metabolic encephalopathy [Unknown]
  - Bradycardia [Unknown]
